FAERS Safety Report 6655451-1 (Version None)
Quarter: 2010Q1

REPORT INFORMATION
  Report Type: 
  Country: None (occurrence: None)
  Receive Date: 20100329
  Receipt Date: 20100323
  Transmission Date: 20100710
  Serious: Yes (Death, Other)
  Sender: FDA-Public Use
  Company Number: RU-LLY01-RU200705001932

PATIENT
  Sex: Female
  Weight: 50 kg

DRUGS (6)
  1. PEMETREXED [Suspect]
     Indication: GASTRIC CANCER STAGE IV
     Dosage: 1000 MG, ON DAY ONE EVERY 21 DAYS
     Route: 042
     Dates: start: 20070307
  2. CISPLATIN [Suspect]
     Indication: GASTRIC CANCER STAGE IV
     Dosage: 107 MG, ON DAY ONE EVERY 21 DAYS
     Route: 042
     Dates: start: 20070307
  3. FOLIC ACID [Concomitant]
     Indication: PROPHYLAXIS
     Dosage: 400 UG, DAILY (1/D)
     Route: 048
     Dates: start: 20070222
  4. VITAMIN B-12 [Concomitant]
     Indication: PROPHYLAXIS
     Dosage: 1000 UG, UNK
     Route: 030
     Dates: start: 20070222, end: 20070426
  5. DEXAMETHASONE [Concomitant]
     Indication: PROPHYLAXIS
     Dosage: 4 MG, 2/D
     Route: 048
     Dates: start: 20070423, end: 20070425
  6. ONDANSETRON [Concomitant]
     Indication: PROPHYLAXIS OF NAUSEA AND VOMITING
     Dates: start: 20070424, end: 20070424

REACTIONS (3)
  - ABDOMINAL PAIN [None]
  - CHEST PAIN [None]
  - SUDDEN DEATH [None]
